FAERS Safety Report 12984684 (Version 1)
Quarter: 2016Q4

REPORT INFORMATION
  Report Type: Spontaneous
  Country: US (occurrence: US)
  Receive Date: 20161129
  Receipt Date: 20161129
  Transmission Date: 20170207
  Serious: Yes (Other)
  Sender: FDA-Public Use
  Company Number: US-SAGENTPRD-2016-US-000069

PATIENT
  Age: 86 Year
  Sex: Male

DRUGS (1)
  1. COLISTIMETHATE FOR INJECTION [Suspect]
     Active Substance: COLISTIMETHATE SODIUM
     Dosage: 160 MG/DAY

REACTIONS (2)
  - Leukopenia [Unknown]
  - Neutropenia [Unknown]
